FAERS Safety Report 6981945-5 (Version None)
Quarter: 2010Q3

REPORT INFORMATION
  Report Type: 
  Country: None (occurrence: None)
  Receive Date: 20100914
  Receipt Date: 20091016
  Transmission Date: 20110219
  Serious: No
  Sender: FDA-Public Use
  Company Number: US-PFIZER INC-2009286475

PATIENT
  Sex: Female
  Weight: 127 kg

DRUGS (4)
  1. LYRICA [Suspect]
     Indication: DIABETIC NEUROPATHY
     Dosage: 25 MG, 1X/DAY
     Route: 048
     Dates: start: 20091010, end: 20091010
  2. NEURONTIN [Concomitant]
     Indication: DIABETIC NEUROPATHY
     Dosage: UNK
  3. CARAFATE [Concomitant]
     Dosage: UNK
  4. PREVACID [Concomitant]
     Dosage: UNK

REACTIONS (3)
  - ABDOMINAL PAIN UPPER [None]
  - HEADACHE [None]
  - NAUSEA [None]
